FAERS Safety Report 5955973-2 (Version None)
Quarter: 2008Q4

REPORT INFORMATION
  Report Type: 
  Country: None (occurrence: None)
  Receive Date: 20081112
  Receipt Date: 20081027
  Transmission Date: 20090506
  Serious: Yes (Hospitalization)
  Sender: FDA-Public Use
  Company Number: 2008S1019367

PATIENT
  Age: 71 Year
  Sex: Female

DRUGS (1)
  1. METHOTREXATE [Suspect]
     Indication: PSORIASIS
     Dosage: 20 MG

REACTIONS (6)
  - ACANTHOLYSIS [None]
  - DERMATOSIS [None]
  - DRUG TOXICITY [None]
  - HYPOTENSION [None]
  - PYREXIA [None]
  - SELF-MEDICATION [None]
